FAERS Safety Report 10583222 (Version 2)
Quarter: 2016Q4

REPORT INFORMATION
  Report Type: Spontaneous
  Country: US (occurrence: US)
  Receive Date: 20141114
  Receipt Date: 20161110
  Transmission Date: 20170206
  Serious: Yes (Other)
  Sender: FDA-Public Use
  Company Number: US-AUROBINDO-AUR-APU-2014-11847

PATIENT
  Sex: Male
  Weight: 72 kg

DRUGS (1)
  1. FINASTERIDE TABLETS USP 5MG [Suspect]
     Active Substance: FINASTERIDE
     Indication: ALOPECIA
     Dosage: 1.25 MG, ONCE A DAY
     Route: 065

REACTIONS (7)
  - Eye disorder [Recovered/Resolved]
  - Genital atrophy [Not Recovered/Not Resolved]
  - Excessive eye blinking [Recovered/Resolved]
  - Lipoatrophy [Not Recovered/Not Resolved]
  - Dry eye [Not Recovered/Not Resolved]
  - Hormone level abnormal [Not Recovered/Not Resolved]
  - Insomnia [Not Recovered/Not Resolved]
